FAERS Safety Report 8585146-9 (Version None)
Quarter: 2012Q3

REPORT INFORMATION
  Report Type: 
  Country: None (occurrence: None)
  Receive Date: 20120810
  Receipt Date: 20120804
  Transmission Date: 20120928
  Serious: Yes (Other)
  Sender: FDA-Public Use
  Company Number: PHHY2012MX068297

PATIENT
  Sex: Female

DRUGS (3)
  1. RANITIDINE [Concomitant]
     Indication: GASTRITIS
     Dosage: 1 DF, QD
     Dates: start: 20120201
  2. METFORMIN HCL [Concomitant]
     Indication: DIABETES MELLITUS
     Dosage: 1 DF, QD
     Route: 048
     Dates: start: 20120401
  3. ZELMAC [Suspect]
     Indication: IRRITABLE BOWEL SYNDROME
     Dosage: 2 DF, QD
     Route: 048
     Dates: start: 20101227, end: 20110401

REACTIONS (3)
  - HYPERTENSION [None]
  - HEADACHE [None]
  - BLOOD GLUCOSE INCREASED [None]
